FAERS Safety Report 8122702-6 (Version None)
Quarter: 2012Q1

REPORT INFORMATION
  Report Type: 
  Country: None (occurrence: None)
  Receive Date: 20120208
  Receipt Date: 20120130
  Transmission Date: 20120608
  Serious: No
  Sender: FDA-Public Use
  Company Number: US-BIOGENIDEC-2011BI037707

PATIENT
  Age: 49 Year
  Sex: Female

DRUGS (5)
  1. TYSABRI [Suspect]
     Indication: MULTIPLE SCLEROSIS
     Route: 042
     Dates: start: 20110106, end: 20111101
  2. ZOLOFT [Concomitant]
  3. XANAX [Concomitant]
  4. NEURONTIN [Concomitant]
  5. HYDROXYCHLOROQUINE SULFATE [Concomitant]

REACTIONS (5)
  - HERPES OPHTHALMIC [None]
  - EYE PAIN [None]
  - HERPES ZOSTER [None]
  - BALANCE DISORDER [None]
  - FATIGUE [None]
